FAERS Safety Report 14025463 (Version 1)
Quarter: 2017Q3

REPORT INFORMATION
  Report Type: Spontaneous
  Country: ES (occurrence: ES)
  Receive Date: 20170929
  Receipt Date: 20170929
  Transmission Date: 20171128
  Serious: Yes (Other)
  Sender: FDA-Public Use
  Company Number: ES-ROCHE-1999979

PATIENT
  Age: 44 Year
  Sex: Female

DRUGS (2)
  1. CEFTRIAXONE. [Suspect]
     Active Substance: CEFTRIAXONE
     Indication: BRAIN ABSCESS
     Route: 042
  2. LEVETIRACETAM. [Concomitant]
     Active Substance: LEVETIRACETAM
     Route: 065

REACTIONS (2)
  - Drug hypersensitivity [Recovered/Resolved]
  - Dermatitis exfoliative [Recovered/Resolved]
